FAERS Safety Report 14458435 (Version 3)
Quarter: 2018Q4

REPORT INFORMATION
  Report Type: Spontaneous
  Country: RU (occurrence: RU)
  Receive Date: 20180130
  Receipt Date: 20181004
  Transmission Date: 20190204
  Serious: Yes (Hospitalization, Other)
  Sender: FDA-Public Use
  Company Number: RU-ASTRAZENECA-2016SF16104

PATIENT
  Age: 51 Year
  Sex: Male
  Weight: 85 kg

DRUGS (6)
  1. CARDIOMAGNYL [Concomitant]
     Active Substance: ASPIRIN\MAGNESIUM HYDROXIDE
  2. CRESTOR [Concomitant]
     Active Substance: ROSUVASTATIN CALCIUM
     Indication: ANGINA UNSTABLE
     Route: 048
     Dates: start: 201607
  3. BETALOC ZOK [Concomitant]
     Active Substance: METOPROLOL SUCCINATE
     Indication: ANGINA UNSTABLE
     Dates: start: 201607
  4. DIROTON [Concomitant]
     Active Substance: LISINOPRIL
  5. BRILINTA [Suspect]
     Active Substance: TICAGRELOR
     Indication: ANGINA UNSTABLE
     Route: 048
     Dates: start: 201607
  6. ASPIRIN CARDIO [Concomitant]
     Active Substance: ASPIRIN

REACTIONS (6)
  - Off label use [Not Recovered/Not Resolved]
  - Angina unstable [Unknown]
  - Angina pectoris [Recovered/Resolved with Sequelae]
  - Chest pain [Unknown]
  - Traumatic haemorrhage [Not Recovered/Not Resolved]
  - Product prescribing issue [Unknown]

NARRATIVE: CASE EVENT DATE: 201608
